FAERS Safety Report 15533660 (Version 1)
Quarter: 2018Q4

REPORT INFORMATION
  Report Type: Spontaneous
  Country: FR (occurrence: FR)
  Receive Date: 20181019
  Receipt Date: 20181019
  Transmission Date: 20190205
  Serious: Yes (Hospitalization)
  Sender: FDA-Public Use
  Company Number: FR-PFIZER INC-2018419659

PATIENT
  Age: 50 Year
  Sex: Male

DRUGS (8)
  1. COVERAM [Concomitant]
     Active Substance: AMLODIPINE\PERINDOPRIL
     Dosage: 1 DF 1X/DAY
     Route: 048
  2. VICTOZA [Concomitant]
     Active Substance: LIRAGLUTIDE
     Dosage: 0.6 MG 1X/DAY
     Route: 058
  3. PLAVIX [Concomitant]
     Active Substance: CLOPIDOGREL BISULFATE
     Dosage: 75 MG 1X/DAY
     Route: 048
  4. GLUCOPHAGE [Concomitant]
     Active Substance: METFORMIN HYDROCHLORIDE
     Dosage: 2000 MG 1X/DAY
     Route: 048
  5. TAHOR [Concomitant]
     Active Substance: ATORVASTATIN CALCIUM
     Dosage: 10 MG 1X/DAY
     Route: 048
  6. IKOREL [Concomitant]
     Active Substance: NICORANDIL
     Dosage: 20 MG 1X/DAY
     Route: 048
  7. TEMERIT [Concomitant]
     Active Substance: NEBIVOLOL
     Dosage: 5 MG 1X/DAY
     Route: 048
  8. SILDENAFIL CITRATE. [Suspect]
     Active Substance: SILDENAFIL CITRATE
     Dosage: 50 MG 1X/DAY
     Route: 048
     Dates: start: 20180910

REACTIONS (1)
  - Ischaemic stroke [Not Recovered/Not Resolved]

NARRATIVE: CASE EVENT DATE: 20180915
